FAERS Safety Report 8252451-5 (Version None)
Quarter: 2012Q2

REPORT INFORMATION
  Report Type: 
  Country: None (occurrence: None)
  Receive Date: 20120402
  Receipt Date: 20110712
  Transmission Date: 20120825
  Serious: No
  Sender: FDA-Public Use
  Company Number: US-ABBOTT-11P-163-0839376-00

PATIENT
  Age: 61 Year
  Sex: Male
  Weight: 95.34 kg

DRUGS (4)
  1. ANDROGEL [Suspect]
  2. BENICAR [Concomitant]
     Indication: BLOOD PRESSURE
  3. ANDROGEL [Suspect]
     Indication: BLOOD TESTOSTERONE DECREASED
     Dates: start: 20080101
  4. HYDROCHLOROTHIAZIDE [Concomitant]
     Indication: BLOOD PRESSURE

REACTIONS (2)
  - BLOOD TESTOSTERONE ABNORMAL [None]
  - BLOOD TESTOSTERONE INCREASED [None]
